FAERS Safety Report 8877385 (Version 4)
Quarter: 2013Q1

REPORT INFORMATION
  Report Type: Spontaneous
  Country: US (occurrence: None)
  Receive Date: 20121026
  Receipt Date: 20130201
  Transmission Date: 20140127
  Serious: Yes (Hospitalization)
  Sender: FDA-Public Use
  Company Number: DKLU1085421

PATIENT
  Age: 49 Year
  Sex: Female

DRUGS (8)
  1. SABRIL [Suspect]
     Indication: COMPLEX PARTIAL SEIZURES
     Route: 048
     Dates: start: 20121011
  2. SABRIL [Suspect]
     Indication: EPILEPSY
     Route: 048
     Dates: start: 20121011
  3. PHENOBARBITAL [Concomitant]
  4. NEURONTIN [Concomitant]
  5. VIMPAT [Concomitant]
  6. ONFI [Concomitant]
  7. TOPAMAX (TOPIRAMATE) [Concomitant]
  8. KEPPRA (LEVETIRACETAM) [Concomitant]

REACTIONS (5)
  - Medical induction of coma [None]
  - Somnolence [None]
  - Drug interaction [None]
  - Status epilepticus [None]
  - Multiple sclerosis relapse [None]
